FAERS Safety Report 11122375 (Version 1)
Quarter: 2015Q2

REPORT INFORMATION
  Report Type: Report from Study
  Country: US (occurrence: US)
  Receive Date: 20150519
  Receipt Date: 20150519
  Transmission Date: 20150821
  Serious: Yes (Other)
  Sender: FDA-Public Use
  Company Number: US-SA-2015SA064685

PATIENT
  Sex: Female

DRUGS (3)
  1. HUMIRA [Suspect]
     Active Substance: ADALIMUMAB
     Indication: RHEUMATOID ARTHRITIS
     Route: 058
     Dates: start: 2009, end: 2011
  2. CATAFLAM [Concomitant]
     Active Substance: DICLOFENAC POTASSIUM
  3. ARAVA [Suspect]
     Active Substance: LEFLUNOMIDE
     Indication: RHEUMATOID ARTHRITIS
     Route: 065
     Dates: start: 2012, end: 2012

REACTIONS (14)
  - Adverse drug reaction [Recovered/Resolved]
  - Pain [Recovered/Resolved]
  - Meningitis [Recovered/Resolved]
  - Coordination abnormal [Recovered/Resolved]
  - Subdural haematoma [Recovered/Resolved]
  - Visual acuity reduced [Recovered/Resolved]
  - Encephalitis [Recovered/Resolved]
  - Rheumatoid arthritis [Recovered/Resolved]
  - Eyelid ptosis [Recovered/Resolved]
  - Headache [Recovered/Resolved]
  - Injection site erythema [Recovered/Resolved]
  - Central nervous system lesion [Recovered/Resolved]
  - Headache [Recovered/Resolved]
  - Somnolence [Recovered/Resolved]

NARRATIVE: CASE EVENT DATE: 2011
